FAERS Safety Report 7054214-5 (Version None)
Quarter: 2010Q4

REPORT INFORMATION
  Report Type: 
  Country: None (occurrence: None)
  Receive Date: 20101020
  Receipt Date: 20101007
  Transmission Date: 20110411
  Serious: Yes (Hospitalization, Other)
  Sender: FDA-Public Use
  Company Number: PHHY2010GR67352

PATIENT
  Age: 74 Year
  Sex: Female

DRUGS (4)
  1. ZOLEDRONATE T29581++BM [Suspect]
     Indication: METASTASES TO BONE
     Dosage: 4MG
     Route: 042
     Dates: start: 20090522, end: 20100921
  2. GLUCOPHAGE [Concomitant]
     Indication: DIABETES MELLITUS
  3. XELODA [Concomitant]
  4. LYRICA [Concomitant]
     Dosage: UNK

REACTIONS (6)
  - EYELID PTOSIS [None]
  - FACIAL PARESIS [None]
  - MUSCULAR WEAKNESS [None]
  - RENAL FAILURE ACUTE [None]
  - RENAL IMPAIRMENT [None]
  - URINARY TRACT INFECTION [None]
